FAERS Safety Report 16069523 (Version 2)
Quarter: 2019Q1

REPORT INFORMATION
  Report Type: Spontaneous
  Country: AU (occurrence: AU)
  Receive Date: 20190314
  Receipt Date: 20190326
  Transmission Date: 20190418
  Serious: Yes (Other)
  Sender: FDA-Public Use
  Company Number: AU-AMGEN-AUSSP2019040009

PATIENT
  Sex: Female

DRUGS (1)
  1. AIMOVIG [Suspect]
     Active Substance: ERENUMAB-AOOE
     Indication: PRODUCT USED FOR UNKNOWN INDICATION
     Dosage: 140 MG, UNK
     Route: 065

REACTIONS (17)
  - Migraine [Unknown]
  - Drug ineffective [Unknown]
  - Depression [Not Recovered/Not Resolved]
  - Hyperhidrosis [Unknown]
  - Myalgia [Unknown]
  - Serum sickness-like reaction [Unknown]
  - Pyrexia [Unknown]
  - Dysgeusia [Unknown]
  - Fatigue [Recovering/Resolving]
  - Injection site erythema [Recovering/Resolving]
  - Injection site pain [Recovering/Resolving]
  - Suicide attempt [Unknown]
  - Injection site swelling [Recovering/Resolving]
  - Feeling abnormal [Recovering/Resolving]
  - Palpitations [Unknown]
  - Arthralgia [Unknown]
  - Hypersomnia [Unknown]

NARRATIVE: CASE EVENT DATE: 20181128
